FAERS Safety Report 8409084-7 (Version None)
Quarter: 2012Q2

REPORT INFORMATION
  Report Type: 
  Country: None (occurrence: None)
  Receive Date: 20120604
  Receipt Date: 20120316
  Transmission Date: 20120825
  Serious: No
  Sender: FDA-Public Use
  Company Number: US-NOVEN-ALL1-2010-01646

PATIENT

DRUGS (2)
  1. DAYTRANA [Suspect]
     Dosage: 20 MG,  QD ON WEEKENDS
     Route: 062
     Dates: start: 20070514, end: 20070101
  2. DAYTRANA [Suspect]
     Dosage: 30 MG, QD ON WEEKDAYS
     Route: 062
     Dates: start: 20070514, end: 20070101

REACTIONS (2)
  - ANGER [None]
  - TOURETTE'S DISORDER [None]
